FAERS Safety Report 9785354 (Version 1)
Quarter: 2013Q4

REPORT INFORMATION
  Report Type: Spontaneous
  Country: US (occurrence: US)
  Receive Date: 20131227
  Receipt Date: 20131227
  Transmission Date: 20140711
  Serious: Yes (Hospitalization, Other)
  Sender: FDA-Public Use
  Company Number: US-JNJFOC-20131210763

PATIENT
  Sex: 0

DRUGS (7)
  1. DOXORUBICIN [Suspect]
     Indication: BURKITT^S LYMPHOMA
     Route: 042
  2. ETOPOSIDE [Suspect]
     Indication: BURKITT^S LYMPHOMA
     Route: 065
  3. CYCLOPHOSPHAMIDE [Suspect]
     Indication: BURKITT^S LYMPHOMA
     Route: 065
  4. VINCRISTINE [Suspect]
     Indication: BURKITT^S LYMPHOMA
     Route: 065
  5. PREDNISONE [Suspect]
     Indication: BURKITT^S LYMPHOMA
     Route: 065
  6. RITUXIMAB [Suspect]
     Indication: BURKITT^S LYMPHOMA
     Route: 065
  7. FILGRASTIM [Concomitant]
     Indication: BURKITT^S LYMPHOMA
     Route: 065

REACTIONS (9)
  - Tumour lysis syndrome [Unknown]
  - Sensory disturbance [Unknown]
  - Ileus [Unknown]
  - Thrombocytopenia [Unknown]
  - Pyrexia [Unknown]
  - Neutropenia [Unknown]
  - Mucosal inflammation [Unknown]
  - Constipation [Unknown]
  - Motor dysfunction [Unknown]
